FAERS Safety Report 8254641-4 (Version None)
Quarter: 2012Q1

REPORT INFORMATION
  Report Type: 
  Country: None (occurrence: None)
  Receive Date: 20120329
  Receipt Date: 20110517
  Transmission Date: 20120608
  Serious: No
  Sender: FDA-Public Use
  Company Number: 2011P1006535

PATIENT
  Age: 65 Year
  Sex: Female
  Weight: 50.8029 kg

DRUGS (1)
  1. NYSTATIN [Suspect]
     Indication: FUNGAL INFECTION
     Dosage: QD
     Dates: end: 20100801

REACTIONS (2)
  - PRODUCT ODOUR ABNORMAL [None]
  - APPLICATION SITE ERYTHEMA [None]
